FAERS Safety Report 8401529-1 (Version None)
Quarter: 2012Q2

REPORT INFORMATION
  Report Type: 
  Country: None (occurrence: None)
  Receive Date: 20120601
  Receipt Date: 20120523
  Transmission Date: 20120825
  Serious: Yes (Hospitalization, Other)
  Sender: FDA-Public Use
  Company Number: MX-SANOFI-AVENTIS-2012SA036942

PATIENT
  Age: 53 Year
  Sex: Male
  Weight: 80 kg

DRUGS (4)
  1. MICARDIS [Suspect]
     Route: 048
     Dates: start: 20110201, end: 20111101
  2. LANTUS [Suspect]
     Indication: TYPE 2 DIABETES MELLITUS
     Route: 058
     Dates: start: 20110201
  3. AMARYL [Suspect]
     Indication: TYPE 2 DIABETES MELLITUS
     Route: 048
     Dates: start: 20110201
  4. BUMETANIDE [Suspect]
     Indication: RENAL FAILURE
     Route: 048
     Dates: start: 20110701

REACTIONS (9)
  - RENAL FAILURE [None]
  - DEVICE DISLOCATION [None]
  - GENERALISED OEDEMA [None]
  - FATIGUE [None]
  - MEDICAL DEVICE IMPLANTATION [None]
  - CATARACT OPERATION [None]
  - VISION BLURRED [None]
  - MALAISE [None]
  - OCULAR HYPERTENSION [None]
